FAERS Safety Report 12531471 (Version 1)
Quarter: 2016Q3

REPORT INFORMATION
  Report Type: Spontaneous
  Country: US (occurrence: US)
  Receive Date: 20160706
  Receipt Date: 20160706
  Transmission Date: 20161109
  Serious: No
  Sender: FDA-Public Use
  Company Number: US-PERRIGO-15US011174

PATIENT
  Age: 49 Year
  Sex: Female
  Weight: 61.22 kg

DRUGS (2)
  1. MICONAZOLE NITRATE. [Suspect]
     Active Substance: MICONAZOLE NITRATE
     Indication: VULVOVAGINAL MYCOTIC INFECTION
     Dosage: 100 MG, QHS
     Route: 067
     Dates: start: 20151016, end: 20151019
  2. MICONAZOLE NITRATE. [Suspect]
     Active Substance: MICONAZOLE NITRATE
     Dosage: 50 MG, QHS
     Route: 067
     Dates: start: 20151020, end: 20151021

REACTIONS (3)
  - Off label use [Recovered/Resolved]
  - No adverse event [Recovered/Resolved]
  - Underdose [Recovered/Resolved]

NARRATIVE: CASE EVENT DATE: 20151016
